FAERS Safety Report 8493615-5 (Version None)
Quarter: 2012Q3

REPORT INFORMATION
  Report Type: 
  Country: None (occurrence: None)
  Receive Date: 20120706
  Receipt Date: 20120627
  Transmission Date: 20120928
  Serious: Yes (Hospitalization)
  Sender: FDA-Public Use
  Company Number: AT-ROCHE-1018165

PATIENT
  Sex: Female
  Weight: 69 kg

DRUGS (7)
  1. PLAVIX [Concomitant]
     Dosage: BEFORE STUDY ENTRY
  2. TRAZODONE HCL [Concomitant]
     Dates: start: 20120502
  3. CITALOPRAM HYDROBROMIDE [Concomitant]
     Dates: start: 20120502
  4. ATORVASTATIN CALCIUM [Concomitant]
     Dosage: BEFORE STUDY ENTRY
  5. VALTREX [Concomitant]
     Dates: start: 20100902
  6. MABTHERA [Suspect]
     Indication: CHRONIC LYMPHOCYTIC LEUKAEMIA
     Dosage: DATE OF LAST DOSE PRIOR TO SAE 16 NOVEMBER 2011, PERMANENTLY DISCONTINUED
     Route: 042
     Dates: start: 20110531, end: 20120116
  7. EUTHYROX [Concomitant]
     Dates: start: 20100101

REACTIONS (3)
  - OPTIC NEURITIS [None]
  - OPTIC ATROPHY [None]
  - AMAUROSIS [None]
